FAERS Safety Report 8575160 (Version 3)
Quarter: 2013Q2

REPORT INFORMATION
  Report Type: Report from Study
  Country: MX (occurrence: MX)
  Receive Date: 20120523
  Receipt Date: 20130530
  Transmission Date: 20140414
  Serious: Yes (Other)
  Sender: FDA-Public Use
  Company Number: PHHY2012MX042587

PATIENT
  Age: 60 Year
  Sex: Female

DRUGS (6)
  1. ACLASTA [Suspect]
     Indication: OSTEOPOROSIS
     Dosage: 5MG/100 ML PER YEAR
     Route: 042
     Dates: start: 200902
  2. ACLASTA [Suspect]
     Dosage: 5MG/100 ML PER YEAR
     Route: 042
     Dates: start: 2011
  3. ACLASTA [Suspect]
     Dosage: 5MG/100 ML PER YEAR
     Route: 042
     Dates: start: 201302
  4. NIMESULIDE [Concomitant]
     Indication: SINUSITIS
     Dosage: UNK UKN, UNK
     Dates: start: 201204
  5. CADUET [Concomitant]
     Indication: HYPERTENSION
     Dosage: 1 DF, QD
     Dates: start: 201202
  6. DIACEREIN [Concomitant]
     Indication: OSTEOPOROSIS
     Dosage: 2 UKN, DAILY
     Dates: start: 20130423

REACTIONS (3)
  - Nephrolithiasis [Not Recovered/Not Resolved]
  - Osteoporosis [Not Recovered/Not Resolved]
  - Pain in extremity [Unknown]
